FAERS Safety Report 24328977 (Version 3)
Quarter: 2025Q1

REPORT INFORMATION
  Report Type: Other
  Country: US (occurrence: US)
  Receive Date: 20240917
  Receipt Date: 20250115
  Transmission Date: 20250408
  Serious: No
  Sender: TRAVERE THERAPEUTICS
  Company Number: US-TRAVERE-2024TVT00842

PATIENT
  Age: 55 Year
  Sex: Female

DRUGS (3)
  1. FILSPARI [Suspect]
     Active Substance: SPARSENTAN
     Indication: IgA nephropathy
     Route: 048
  2. FILSPARI [Suspect]
     Active Substance: SPARSENTAN
     Indication: Haematuria
     Dosage: DOSE INCEASED
     Route: 048
     Dates: start: 202408
  3. FILSPARI [Suspect]
     Active Substance: SPARSENTAN
     Dosage: 200MG
     Route: 048

REACTIONS (4)
  - Hypotension [None]
  - Hepatic enzyme increased [Unknown]
  - Upper respiratory tract infection [Unknown]
  - Dizziness [None]

NARRATIVE: CASE EVENT DATE: 20240822
